FAERS Safety Report 24335762 (Version 1)
Quarter: 2024Q3

REPORT INFORMATION
  Report Type: Spontaneous
  Country: DE (occurrence: DE)
  Receive Date: 20240919
  Receipt Date: 20240919
  Transmission Date: 20241017
  Serious: Yes (Congenital Anomaly, Other)
  Sender: AUROBINDO
  Company Number: DE-BFARM-14148147

PATIENT
  Age: 1 Day
  Sex: Female
  Weight: 4.27 kg

DRUGS (3)
  1. PAROXETINE [Suspect]
     Active Substance: PAROXETINE
     Indication: Depression
     Dosage: GW 20: 20 MG/D; GW 20 TO 28: 35 MG/D, AFTER GW 28: 40 MG
     Route: 064
     Dates: start: 20130228, end: 20131124
  2. PAROXETINE [Suspect]
     Active Substance: PAROXETINE
     Dosage: 35 MG, DAILY (GW 20-28)
     Route: 064
     Dates: start: 2013, end: 2013
  3. PAROXETINE [Suspect]
     Active Substance: PAROXETINE
     Dosage: 40 MG, UNK (AFTER GW 28)
     Route: 064
     Dates: start: 2013, end: 20131124

REACTIONS (8)
  - Atrial septal defect [Unknown]
  - Neonatal respiratory distress [Recovered/Resolved]
  - Large for dates baby [Unknown]
  - Drug withdrawal syndrome [Recovered/Resolved]
  - Foetal exposure during pregnancy [Unknown]
  - Crying [Recovered/Resolved]
  - Restlessness [Recovered/Resolved]
  - Tachypnoea [Recovering/Resolving]

NARRATIVE: CASE EVENT DATE: 20131124
